FAERS Safety Report 25871680 (Version 1)
Quarter: 2025Q4

REPORT INFORMATION
  Report Type: Spontaneous
  Country: US (occurrence: US)
  Receive Date: 20251001
  Receipt Date: 20251001
  Transmission Date: 20260117
  Serious: No
  Sender: RECKITT BENCKISER
  Company Number: US-INDIVIOR US-INDV-163731-2025

PATIENT
  Age: 55 Year
  Sex: Female
  Weight: 61.769 kg

DRUGS (5)
  1. SUBOXONE [Suspect]
     Active Substance: BUPRENORPHINE HYDROCHLORIDE\NALOXONE HYDROCHLORIDE
     Indication: Drug dependence
     Dosage: UNK
     Route: 065
     Dates: start: 201009
  2. SUBOXONE [Suspect]
     Active Substance: BUPRENORPHINE HYDROCHLORIDE\NALOXONE HYDROCHLORIDE
     Indication: Pain
     Dosage: 8 MILLIGRAM, BID
     Route: 065
     Dates: start: 20150325
  3. SUBOXONE [Suspect]
     Active Substance: BUPRENORPHINE HYDROCHLORIDE\NALOXONE HYDROCHLORIDE
     Dosage: 8 MILLIGRAM, BID
     Route: 060
     Dates: start: 20210914
  4. BUPRENORPHINE\NALOXONE [Suspect]
     Active Substance: BUPRENORPHINE\NALOXONE
     Indication: Drug dependence
     Dosage: 8 MILLIGRAM, UNKNOWN
     Route: 065
     Dates: start: 201806
  5. BUPRENORPHINE\NALOXONE [Suspect]
     Active Substance: BUPRENORPHINE\NALOXONE
     Indication: Pain

REACTIONS (6)
  - Periodontal disease [Unknown]
  - Dental caries [Unknown]
  - Tooth erosion [Unknown]
  - Tooth abscess [Unknown]
  - Gingival swelling [Unknown]
  - Inappropriate schedule of product administration [Unknown]

NARRATIVE: CASE EVENT DATE: 20150323
